FAERS Safety Report 12498888 (Version 2)
Quarter: 2016Q3

REPORT INFORMATION
  Report Type: Spontaneous
  Country: GB (occurrence: GB)
  Receive Date: 20160627
  Receipt Date: 20160705
  Transmission Date: 20161109
  Serious: Yes (Other)
  Sender: FDA-Public Use
  Company Number: GB-PFIZER INC-2016286946

PATIENT
  Age: 70 Year
  Sex: Male

DRUGS (16)
  1. RAMIPRIL. [Suspect]
     Active Substance: RAMIPRIL
     Indication: VASCULAR GRAFT
     Dosage: UNK
     Route: 065
     Dates: start: 2015, end: 2015
  2. LEVOTHYROXINE. [Suspect]
     Active Substance: LEVOTHYROXINE
     Indication: PROPHYLAXIS
  3. BISOPROLOL [Interacting]
     Active Substance: BISOPROLOL
     Indication: VASCULAR GRAFT
     Dosage: 1.25 MG, UNK
     Route: 065
     Dates: start: 201407, end: 2015
  4. CLOPIDOGREL BISULFATE. [Suspect]
     Active Substance: CLOPIDOGREL BISULFATE
     Indication: PROPHYLAXIS
  5. ASPIRIN. [Suspect]
     Active Substance: ASPIRIN
     Indication: PROPHYLAXIS
  6. LEVOTHYROXINE. [Suspect]
     Active Substance: LEVOTHYROXINE
     Indication: VASCULAR GRAFT
     Dosage: 150 UG, 1X/DAY
     Route: 065
     Dates: start: 201508
  7. QUININE [Concomitant]
     Active Substance: QUININE
     Indication: RESTLESS LEGS SYNDROME
     Dosage: UNK
  8. LEVOTHYROXINE. [Suspect]
     Active Substance: LEVOTHYROXINE
     Indication: THYROID DISORDER
  9. DIFFUNDOX XL [Suspect]
     Active Substance: TAMSULOSIN HYDROCHLORIDE
     Indication: PROSTATOMEGALY
  10. BISOPROLOL [Interacting]
     Active Substance: BISOPROLOL
     Indication: PROPHYLAXIS
  11. CLOPIDOGREL BISULFATE. [Suspect]
     Active Substance: CLOPIDOGREL BISULFATE
     Indication: VASCULAR GRAFT
     Dosage: 75 MG, 1X/DAY
     Route: 065
     Dates: start: 201407
  12. ASPIRIN. [Suspect]
     Active Substance: ASPIRIN
     Indication: VASCULAR GRAFT
     Dosage: 75 MG, 1X/DAY
     Route: 065
  13. QUININE SULFATE. [Concomitant]
     Active Substance: QUININE SULFATE
     Dosage: UNK
  14. SIMVASTATIN. [Concomitant]
     Active Substance: SIMVASTATIN
     Indication: BLOOD CHOLESTEROL
     Dosage: UNK
  15. DIFFUNDOX XL [Suspect]
     Active Substance: TAMSULOSIN HYDROCHLORIDE
     Indication: VASCULAR GRAFT
     Dosage: 400 UG, 1X/DAY
     Route: 065
     Dates: start: 201407
  16. DIFFUNDOX XL [Suspect]
     Active Substance: TAMSULOSIN HYDROCHLORIDE
     Indication: PROPHYLAXIS

REACTIONS (8)
  - Dizziness [Unknown]
  - Nasopharyngitis [Unknown]
  - Activities of daily living impaired [Unknown]
  - Dyspnoea [Not Recovered/Not Resolved]
  - Drug interaction [Unknown]
  - Chest discomfort [Not Recovered/Not Resolved]
  - Osteoarthritis [Unknown]
  - Chest pain [Not Recovered/Not Resolved]

NARRATIVE: CASE EVENT DATE: 2014
